FAERS Safety Report 6739310-1 (Version None)
Quarter: 2010Q2

REPORT INFORMATION
  Report Type: 
  Country: None (occurrence: None)
  Receive Date: 20100525
  Receipt Date: 20100517
  Transmission Date: 20101027
  Serious: Yes (Hospitalization)
  Sender: FDA-Public Use
  Company Number: PHHO2010ES06193

PATIENT
  Sex: Female
  Weight: 58 kg

DRUGS (5)
  1. DIOVAN [Suspect]
     Indication: CARDIAC FAILURE
     Dosage: NO TREATMENT
  2. BLINDED LCZ696 LCZ+TAB [Suspect]
     Indication: CARDIAC FAILURE
     Dosage: NO TREATMENT
  3. BLINDED NO TREATMENT RECEIVED NOMED [Suspect]
     Indication: CARDIAC FAILURE
     Dosage: NO TREATMENT
  4. PLACEBO [Suspect]
     Indication: CARDIAC FAILURE CHRONIC
     Dosage: UNK
  5. SPIRONOLACTONE [Concomitant]

REACTIONS (6)
  - CARDIAC FAILURE [None]
  - DISEASE PROGRESSION [None]
  - DYSPNOEA [None]
  - DYSPNOEA PAROXYSMAL NOCTURNAL [None]
  - OEDEMA PERIPHERAL [None]
  - URINARY TRACT INFECTION [None]
